FAERS Safety Report 5846911-1 (Version None)
Quarter: 2008Q3

REPORT INFORMATION
  Report Type: 
  Country: None (occurrence: None)
  Receive Date: 20080815
  Receipt Date: 20080804
  Transmission Date: 20090109
  Serious: Yes (Other)
  Sender: FDA-Public Use
  Company Number: SE-ROCHE-579557

PATIENT
  Age: 52 Year
  Sex: Male

DRUGS (14)
  1. PEGASYS [Suspect]
     Indication: HEPATITIS C
     Route: 058
     Dates: start: 20080428, end: 20080603
  2. PEGASYS [Suspect]
     Route: 058
     Dates: start: 20080603
  3. DUROFERON [Concomitant]
     Dosage: DOSAGE: 1 X 1
     Route: 048
  4. KALURIL [Concomitant]
     Dosage: DRUG: KALUREI DOSAGE: 1 X 1
     Route: 048
  5. SPIRONOLACTONE [Concomitant]
     Dosage: DOSAGE: 1 X 1
     Route: 048
  6. ORALOVITE [Concomitant]
     Dosage: DRUG: ORALUVITE  DOSAGE: 1 X 1
     Route: 048
  7. OMEPRAZOLE [Concomitant]
     Dosage: DOSAGE: 20 MG X 1
  8. MADOPARK QUICK MITE [Concomitant]
     Dosage: DOSAGE: 1 TABLET IN THE EVENING.
  9. SYMBICORT [Concomitant]
     Dosage: DOSAGE: 1-2X2
  10. ATROVENT [Concomitant]
     Dosage: DOSAGE: 1X4 ON DEMAND.
  11. ROCEPHIN [Concomitant]
  12. TAVANIC [Concomitant]
  13. CASPOFUNGIN [Concomitant]
     Dosage: TWO DOSES
  14. VFEND [Concomitant]

REACTIONS (9)
  - CARDIAC FAILURE [None]
  - COUGH [None]
  - DYSPNOEA [None]
  - HEPATIC CIRRHOSIS [None]
  - NEUTROPENIA [None]
  - OEDEMA [None]
  - TENDON RUPTURE [None]
  - THROMBOCYTOPENIA [None]
  - WEIGHT INCREASED [None]
